FAERS Safety Report 8517668-0 (Version None)
Quarter: 2012Q3

REPORT INFORMATION
  Report Type: 
  Country: None (occurrence: None)
  Receive Date: 20120718
  Receipt Date: 20120712
  Transmission Date: 20120928
  Serious: Yes (Death)
  Sender: FDA-Public Use
  Company Number: JP-EISAI INC-E7389-01820-CLI-JP

PATIENT
  Sex: Female
  Weight: 100 kg

DRUGS (21)
  1. HALAVEN [Suspect]
     Indication: METASTASES TO LUNG
  2. LASIX [Concomitant]
     Route: 048
  3. DIAZEPAM [Concomitant]
     Route: 042
  4. HALAVEN [Suspect]
     Indication: BREAST CANCER RECURRENT
     Route: 041
     Dates: start: 20111101, end: 20111108
  5. LOXONIN [Concomitant]
     Route: 048
  6. LYRICA [Concomitant]
     Route: 048
  7. HALAVEN [Suspect]
     Indication: METASTASES TO LYMPH NODES
  8. IRON SUCROSE [Concomitant]
     Route: 042
  9. FENTANYL CITRATE [Concomitant]
  10. VANCOMYCIN [Concomitant]
     Route: 042
  11. URSO 250 [Concomitant]
     Route: 048
  12. ZONISAMIDE [Concomitant]
     Route: 048
  13. HALAVEN [Suspect]
     Indication: METASTASES TO BONE
  14. MUCOSTA [Concomitant]
     Route: 048
  15. NEUROTROPIN [Concomitant]
     Route: 048
  16. ADONA [Concomitant]
     Route: 042
  17. RABEPRAZOLE SODIUM [Concomitant]
     Route: 048
  18. ACETAMINOPHEN [Concomitant]
     Route: 048
  19. SEROTONE [Concomitant]
     Indication: PROPHYLAXIS
     Route: 042
  20. DECADRON [Concomitant]
     Indication: PROPHYLAXIS
     Route: 042
  21. RIKAVARIN [Concomitant]
     Indication: RECTAL ULCER
     Route: 042

REACTIONS (1)
  - NEOPLASM MALIGNANT [None]
